FAERS Safety Report 19139765 (Version 1)
Quarter: 2021Q2

REPORT INFORMATION
  Report Type: Spontaneous
  Country: US (occurrence: US)
  Receive Date: 20210415
  Receipt Date: 20210415
  Transmission Date: 20210717
  Serious: No
  Sender: FDA-Public Use
  Company Number: None

PATIENT
  Age: 45 Year
  Sex: Male
  Weight: 90 kg

DRUGS (2)
  1. IODIXANOL. [Suspect]
     Active Substance: IODIXANOL
     Indication: CORONARY ANGIOPLASTY
     Dosage: ?          OTHER ROUTE:IV?
     Route: 042
     Dates: start: 20210322, end: 20210322
  2. IOVERSOL [Suspect]
     Active Substance: IOVERSOL
     Dosage: ?          OTHER ROUTE:IV?
     Route: 042
     Dates: start: 20210324, end: 20210324

REACTIONS (5)
  - Drug eruption [None]
  - Dermatitis exfoliative generalised [None]
  - Urticaria [None]
  - Rash [None]
  - Acute generalised exanthematous pustulosis [None]

NARRATIVE: CASE EVENT DATE: 20210324
